FAERS Safety Report 9568548 (Version 2)
Quarter: 2014Q2

REPORT INFORMATION
  Report Type: Spontaneous
  Country: US (occurrence: US)
  Receive Date: 20130930
  Receipt Date: 20140402
  Transmission Date: 20141212
  Serious: No
  Sender: FDA-Public Use
  Company Number: US-AMGEN-USASP2013061801

PATIENT
  Age: 29 Year
  Sex: Female

DRUGS (1)
  1. ENBREL [Suspect]
     Indication: RHEUMATOID ARTHRITIS
     Dosage: 50 MG, QWK
     Route: 065
     Dates: start: 20130819

REACTIONS (15)
  - Skin haemorrhage [Recovered/Resolved]
  - Pain in extremity [Recovered/Resolved]
  - Arthralgia [Recovered/Resolved]
  - Musculoskeletal stiffness [Recovered/Resolved]
  - Rash [Recovered/Resolved]
  - Burns second degree [Not Recovered/Not Resolved]
  - Laceration [Recovered/Resolved]
  - Impaired healing [Recovered/Resolved]
  - Contusion [Not Recovered/Not Resolved]
  - Paraesthesia [Not Recovered/Not Resolved]
  - Injection site bruising [Recovered/Resolved]
  - Injection site vesicles [Recovered/Resolved]
  - Injection site rash [Not Recovered/Not Resolved]
  - Sinusitis [Recovered/Resolved]
  - Skin infection [Recovered/Resolved]
